FAERS Safety Report 7392113-X (Version None)
Quarter: 2011Q2

REPORT INFORMATION
  Report Type: 
  Country: None (occurrence: None)
  Receive Date: 20110404
  Receipt Date: 20110325
  Transmission Date: 20111010
  Serious: Yes (Hospitalization)
  Sender: FDA-Public Use
  Company Number: A0893004A

PATIENT
  Age: 59 Year
  Sex: Female

DRUGS (9)
  1. KLONOPIN [Concomitant]
  2. PAXIL [Concomitant]
  3. ADVAIR DISKUS 100/50 [Suspect]
     Indication: ASTHMA
     Route: 055
     Dates: start: 20090101
  4. VENTOLIN [Suspect]
     Indication: ASTHMA
     Dosage: 2PUFF AS REQUIRED
     Route: 055
     Dates: start: 20100901
  5. ZESTRIL [Concomitant]
  6. HYDROCHLOROTHIAZIDE [Concomitant]
  7. ZANTAC [Concomitant]
  8. DICYCLOMINE [Concomitant]
  9. NEXIUM [Concomitant]

REACTIONS (4)
  - COUGH [None]
  - DYSPNOEA [None]
  - CHEST DISCOMFORT [None]
  - DIARRHOEA [None]
